FAERS Safety Report 7982537-1 (Version None)
Quarter: 2011Q4

REPORT INFORMATION
  Report Type: 
  Country: None (occurrence: None)
  Receive Date: 20111215
  Receipt Date: 20111209
  Transmission Date: 20120403
  Serious: Yes (Death)
  Sender: FDA-Public Use
  Company Number: GB-ROCHE-1016615

PATIENT
  Sex: Male

DRUGS (10)
  1. LUCENTIS [Suspect]
     Route: 050
     Dates: start: 20110825
  2. AMLODIPINE [Concomitant]
  3. FINASTERIDE [Concomitant]
  4. LUCENTIS [Suspect]
     Indication: AGE-RELATED MACULAR DEGENERATION
     Route: 050
     Dates: start: 20090903
  5. ASPIRIN [Concomitant]
  6. TAMSULOSIN HCL [Concomitant]
  7. LORATADINE [Concomitant]
  8. LANSOPRAZOLE [Concomitant]
  9. ALLOPURINOL [Concomitant]
  10. SIMVASTATIN [Concomitant]

REACTIONS (1)
  - MYOCARDIAL INFARCTION [None]
